FAERS Safety Report 21508746 (Version 3)
Quarter: 2022Q4

REPORT INFORMATION
  Report Type: Spontaneous
  Country: LK (occurrence: LK)
  Receive Date: 20221026
  Receipt Date: 20221109
  Transmission Date: 20230113
  Serious: Yes (Hospitalization)
  Sender: FDA-Public Use
  Company Number: LK-BAYER-2022A148428

PATIENT
  Age: 66 Year
  Sex: Male

DRUGS (1)
  1. ULTRAVIST [Suspect]
     Active Substance: IOPROMIDE
     Indication: Computerised tomogram abdomen
     Dosage: 120 ML, ONCE
     Dates: start: 20221020, end: 20221020

REACTIONS (4)
  - Angioedema [Recovered/Resolved]
  - Pruritus [Recovered/Resolved]
  - Rash [Recovered/Resolved]
  - Oropharyngeal discomfort [Recovered/Resolved]

NARRATIVE: CASE EVENT DATE: 20221020
